FAERS Safety Report 17549734 (Version 1)
Quarter: 2020Q1

REPORT INFORMATION
  Report Type: Spontaneous
  Country: US (occurrence: US)
  Receive Date: 20200316
  Receipt Date: 20200316
  Transmission Date: 20200409
  Serious: Yes (Life-Threatening)
  Sender: FDA-Public Use
  Company Number: None

PATIENT
  Age: 49 Year
  Sex: Male

DRUGS (1)
  1. REMICADE [Suspect]
     Active Substance: INFLIXIMAB
     Dosage: EVERY 8 WEEKS
     Route: 042

REACTIONS (4)
  - Loss of consciousness [None]
  - Adverse drug reaction [None]
  - Pulse absent [None]
  - Swelling face [None]

NARRATIVE: CASE EVENT DATE: 20200316
